FAERS Safety Report 14901635 (Version 1)
Quarter: 2018Q2

REPORT INFORMATION
  Report Type: Spontaneous
  Country: US (occurrence: US)
  Receive Date: 20180429
  Receipt Date: 20180429
  Transmission Date: 20180711
  Serious: Yes (Disabling, Other)
  Sender: FDA-Public Use
  Company Number: None

PATIENT
  Age: 62 Year
  Sex: Female
  Weight: 81.45 kg

DRUGS (2)
  1. LEVOFLOXACIN. [Suspect]
     Active Substance: LEVOFLOXACIN
     Indication: BRONCHITIS
     Dosage: ?          QUANTITY:10 TABLET(S);?
     Route: 048
     Dates: start: 20180226, end: 20180306
  2. LEVOFLOXACIN. [Suspect]
     Active Substance: LEVOFLOXACIN
     Indication: EAR INFECTION
     Dosage: ?          QUANTITY:10 TABLET(S);?
     Route: 048
     Dates: start: 20180226, end: 20180306

REACTIONS (25)
  - Constipation [None]
  - Paraesthesia [None]
  - Hyperaesthesia [None]
  - Vitamin B1 decreased [None]
  - Balance disorder [None]
  - Memory impairment [None]
  - Cluster headache [None]
  - Fatigue [None]
  - Loss of personal independence in daily activities [None]
  - Influenza like illness [None]
  - Speech disorder [None]
  - Dizziness [None]
  - Decreased appetite [None]
  - Thinking abnormal [None]
  - Hyperacusis [None]
  - Blepharospasm [None]
  - Pruritus [None]
  - Irritability [None]
  - Miliaria [None]
  - Gait inability [None]
  - Vitamin B12 decreased [None]
  - Tendonitis [None]
  - Hypoaesthesia [None]
  - Dyspepsia [None]
  - Blister [None]

NARRATIVE: CASE EVENT DATE: 20180228
